FAERS Safety Report 12334965 (Version 2)
Quarter: 2016Q3

REPORT INFORMATION
  Report Type: Spontaneous
  Country: US (occurrence: US)
  Receive Date: 20160504
  Receipt Date: 20160713
  Transmission Date: 20161109
  Serious: Yes (Hospitalization, Other)
  Sender: FDA-Public Use
  Company Number: US-TEVA-656233USA

PATIENT
  Age: 50 Year
  Sex: Female
  Weight: 63.11 kg

DRUGS (5)
  1. CINRYZE [Concomitant]
     Active Substance: HUMAN C1-ESTERASE INHIBITOR
     Indication: PRODUCT USED FOR UNKNOWN INDICATION
     Dosage: 666.6667  DAILY;
     Route: 042
  2. DANAZOL. [Suspect]
     Active Substance: DANAZOL
     Indication: PRODUCT USED FOR UNKNOWN INDICATION
     Dosage: 1500 MILLIGRAM DAILY;
     Route: 065
     Dates: start: 1994, end: 2008
  3. NASONEX [Concomitant]
     Active Substance: MOMETASONE FUROATE
  4. ZANTAC [Concomitant]
     Active Substance: RANITIDINE HYDROCHLORIDE
     Dosage: 300 MILLIGRAM DAILY;
     Route: 048
  5. KALBITOR [Suspect]
     Active Substance: ECALLANTIDE
     Indication: HEREDITARY ANGIOEDEMA
     Route: 058
     Dates: start: 201504

REACTIONS (6)
  - Angiopathy [Unknown]
  - Coronary artery disease [Recovered/Resolved]
  - Oedema [Unknown]
  - Myocardial infarction [Recovered/Resolved]
  - Vasospasm [Unknown]
  - Chest pain [Unknown]

NARRATIVE: CASE EVENT DATE: 20160327
